FAERS Safety Report 22196224 (Version 1)
Quarter: 2023Q2

REPORT INFORMATION
  Report Type: Spontaneous
  Country: MX (occurrence: MX)
  Receive Date: 20230411
  Receipt Date: 20230411
  Transmission Date: 20230722
  Serious: Yes (Hospitalization)
  Sender: FDA-Public Use
  Company Number: MX-STRIDES ARCOLAB LIMITED-2023SP004813

PATIENT
  Age: 52 Year
  Sex: Male

DRUGS (9)
  1. DEXAMETHASONE [Suspect]
     Active Substance: DEXAMETHASONE
     Indication: COVID-19 pneumonia
     Dosage: 8 MILLIGRAM PER DAY
     Route: 065
  2. DEXAMETHASONE [Suspect]
     Active Substance: DEXAMETHASONE
     Indication: Mucormycosis
     Dosage: UNK; EYE DROPS FOR MUCORMYCOSIS
     Route: 065
  3. CIPROFLOXACIN [Suspect]
     Active Substance: CIPROFLOXACIN
     Indication: Mucormycosis
     Dosage: UNK
     Route: 065
  4. NEOMYCIN [Suspect]
     Active Substance: NEOMYCIN
     Indication: Mucormycosis
     Dosage: UNK
     Route: 065
  5. FLUOROMETHOLONE [Suspect]
     Active Substance: FLUOROMETHOLONE
     Indication: Mucormycosis
     Dosage: UNK
     Route: 065
  6. MOXIFLOXACIN [Suspect]
     Active Substance: MOXIFLOXACIN
     Indication: Mucormycosis
     Dosage: UNK
     Route: 065
  7. SODIUM HYALURONATE [Concomitant]
     Active Substance: HYALURONATE SODIUM
     Indication: Mucormycosis
     Dosage: UNK
     Route: 065
  8. DORZOLAMIDE [Concomitant]
     Active Substance: DORZOLAMIDE
     Indication: Mucormycosis
     Dosage: UNK
     Route: 065
  9. TIMOLOL [Concomitant]
     Active Substance: TIMOLOL
     Indication: Mucormycosis
     Dosage: UNK
     Route: 065

REACTIONS (6)
  - Cavernous sinus syndrome [Recovered/Resolved]
  - Cavernous sinus thrombosis [Recovered/Resolved]
  - Mucormycosis [Recovered/Resolved]
  - Rhinocerebral mucormycosis [Recovered/Resolved]
  - Condition aggravated [Recovered/Resolved]
  - Off label use [Unknown]
